FAERS Safety Report 5351529-3 (Version None)
Quarter: 2007Q2

REPORT INFORMATION
  Report Type: 
  Country: None (occurrence: None)
  Receive Date: 20070608
  Receipt Date: 20070605
  Transmission Date: 20071010
  Serious: Yes (Life-Threatening, Other)
  Sender: FDA-Public Use
  Company Number: PT-MERCK-0706PRT00001

PATIENT
  Age: 88 Year
  Sex: Female
  Weight: 50 kg

DRUGS (38)
  1. NOROXIN [Suspect]
     Indication: URINARY TRACT INFECTION
     Route: 048
     Dates: start: 20061016, end: 20061030
  2. MAGNESIUM PIDOLATE [Concomitant]
     Indication: HYPOMAGNESAEMIA
     Route: 048
     Dates: start: 20060912, end: 20061110
  3. DEFLAZACORT [Concomitant]
     Indication: RHEUMATOID ARTHRITIS
     Route: 048
     Dates: start: 20060101, end: 20060903
  4. AMIODARONE [Concomitant]
     Indication: ATRIAL FIBRILLATION
     Route: 042
     Dates: start: 20060828, end: 20060901
  5. CAPTOPRIL [Concomitant]
     Indication: HYPERTENSION
     Route: 060
     Dates: start: 20060901, end: 20061110
  6. CLOTRIMAZOLE [Concomitant]
     Indication: ERYTHEMA
     Route: 048
     Dates: start: 20060912, end: 20061110
  7. DALTEPARIN SODIUM [Concomitant]
     Indication: PROPHYLAXIS
     Route: 058
     Dates: start: 20060912, end: 20061110
  8. FUROSEMIDE [Concomitant]
     Indication: HYPERTENSION
     Route: 042
     Dates: start: 20060901, end: 20061110
  9. MEROPENEM [Concomitant]
     Indication: LIVER ABSCESS
     Route: 042
     Dates: start: 20060901, end: 20060908
  10. IMIPENEM [Concomitant]
     Indication: LIVER ABSCESS
     Route: 042
     Dates: start: 20060908, end: 20061003
  11. TIOTROPIUM BROMIDE [Concomitant]
     Dates: start: 20060901
  12. THIAMINE HYDROCHLORIDE [Concomitant]
     Route: 048
     Dates: start: 20060912, end: 20061110
  13. RIBOFLAVIN [Concomitant]
     Route: 048
     Dates: start: 20060912, end: 20061110
  14. PYRIDOXINE HYDROCHLORIDE [Concomitant]
     Route: 048
     Dates: start: 20060912, end: 20061110
  15. CYANOCOBALAMIN [Concomitant]
     Route: 048
     Dates: start: 20060912, end: 20061110
  16. PHYTONADIONE [Concomitant]
     Route: 048
     Dates: start: 20060912, end: 20061110
  17. ASCORBIC ACID [Concomitant]
     Route: 048
     Dates: start: 20060912, end: 20061110
  18. FOLIC ACID [Concomitant]
     Route: 048
     Dates: start: 20060912, end: 20061110
  19. PANTOTHENIC ACID [Concomitant]
     Route: 048
     Dates: start: 20060912, end: 20061110
  20. BIOTIN [Concomitant]
     Route: 048
     Dates: start: 20060912, end: 20061110
  21. CALCIUM (UNSPECIFIED) [Concomitant]
     Route: 048
     Dates: start: 20060912, end: 20061110
  22. IODINE [Concomitant]
     Route: 048
     Dates: start: 20060912, end: 20061110
  23. NIACINAMIDE [Concomitant]
     Route: 048
     Dates: start: 20060912, end: 20061110
  24. POTASSIUM (UNSPECIFIED) [Concomitant]
     Route: 048
     Dates: start: 20060912, end: 20061110
  25. ZINC (UNSPECIFIED) [Concomitant]
     Route: 048
     Dates: start: 20060912, end: 20061110
  26. OMEPRAZOLE [Concomitant]
     Indication: PROPHYLAXIS AGAINST GASTROINTESTINAL ULCER
     Route: 042
     Dates: start: 20060828, end: 20060912
  27. POTASSIUM CHLORIDE [Concomitant]
     Indication: PROPHYLAXIS AGAINST GASTROINTESTINAL ULCER
     Route: 042
     Dates: start: 20060901, end: 20060901
  28. AMIODARONE [Concomitant]
     Route: 048
     Dates: start: 20060901, end: 20060904
  29. BECLOMETHASONE DIPROPIONATE [Concomitant]
     Dates: start: 20060901, end: 20061110
  30. VERAPAMIL HYDROCHLORIDE [Concomitant]
     Indication: HYPERTENSION
     Route: 048
     Dates: start: 20060912
  31. PREDNISOLONE [Concomitant]
     Indication: RHEUMATOID ARTHRITIS
     Route: 048
  32. GENTAMICIN [Concomitant]
     Indication: LIVER ABSCESS
     Route: 042
     Dates: start: 20060901, end: 20061003
  33. DIGOXIN [Concomitant]
     Route: 048
     Dates: end: 20060828
  34. PIPERACILLIN SODIUM [Concomitant]
     Indication: URINARY TRACT INFECTION
     Route: 042
     Dates: start: 20060828, end: 20060901
  35. TAZOBACTAM SODIUM [Concomitant]
     Indication: URINARY TRACT INFECTION
     Route: 042
     Dates: start: 20060828, end: 20060901
  36. CIPROFLOXACIN [Concomitant]
     Indication: URINARY TRACT INFECTION
     Route: 048
     Dates: start: 20060823, end: 20060828
  37. METRONIDAZOLE [Concomitant]
     Indication: LIVER ABSCESS
     Route: 042
     Dates: start: 20060901, end: 20061003
  38. ALBUTEROL SULFATE [Concomitant]
     Dates: start: 20060901, end: 20061110

REACTIONS (1)
  - THROMBOCYTHAEMIA [None]
